FAERS Safety Report 6296095-3 (Version None)
Quarter: 2009Q3

REPORT INFORMATION
  Report Type: 
  Country: None (occurrence: None)
  Receive Date: 20090731
  Receipt Date: 20090721
  Transmission Date: 20100115
  Serious: Yes (Disabling)
  Sender: FDA-Public Use
  Company Number: 2009AP002985

PATIENT
  Age: 57 Year
  Sex: Male

DRUGS (4)
  1. RISPERIDONE [Suspect]
     Indication: SCHIZOPHRENIA, PARANOID TYPE
     Dates: start: 20081201
  2. SALBUTAMOL (SALBUTAMOL) [Concomitant]
  3. BUDESONIDE (BUDESOMIDE) [Concomitant]
  4. FORMETEROL FUMARATE (FORMOTEROL FUMARATE) [Concomitant]

REACTIONS (2)
  - ASTHMA [None]
  - CONDITION AGGRAVATED [None]
